FAERS Safety Report 6141341-X (Version None)
Quarter: 2009Q2

REPORT INFORMATION
  Report Type: 
  Country: None (occurrence: None)
  Receive Date: 20090401
  Receipt Date: 20090401
  Transmission Date: 20091009
  Serious: Yes (Hospitalization)
  Sender: FDA-Public Use
  Company Number: None

PATIENT
  Age: 71 Year
  Sex: Female
  Weight: 68.0396 kg

DRUGS (1)
  1. CHANTIX [Suspect]
     Indication: SMOKING CESSATION THERAPY
     Dates: start: 20090101, end: 20090201

REACTIONS (10)
  - ANGER [None]
  - ANXIETY [None]
  - ARTHRALGIA [None]
  - BLOOD PRESSURE INADEQUATELY CONTROLLED [None]
  - CRYING [None]
  - EMOTIONAL DISORDER [None]
  - IMMOBILE [None]
  - MEMORY IMPAIRMENT [None]
  - MOVEMENT DISORDER [None]
  - MYALGIA [None]
